FAERS Safety Report 8115740-0 (Version None)
Quarter: 2012Q1

REPORT INFORMATION
  Report Type: 
  Country: None (occurrence: None)
  Receive Date: 20120206
  Receipt Date: 20120125
  Transmission Date: 20120608
  Serious: Yes (Hospitalization)
  Sender: FDA-Public Use
  Company Number: US-JNJFOC-20120112112

PATIENT
  Sex: Male
  Weight: 86.2 kg

DRUGS (11)
  1. INFLIXIMAB, RECOMBINANT [Suspect]
     Indication: INFLAMMATORY BOWEL DISEASE
     Route: 042
     Dates: start: 20070324, end: 20071015
  2. PROBIOTICS [Concomitant]
  3. RIFAXIMIN [Concomitant]
  4. COMBIVENT [Concomitant]
  5. IMODIUM [Concomitant]
  6. TACROLIMUS [Concomitant]
  7. OMEPRAZOLE [Concomitant]
  8. CLARITIN [Concomitant]
  9. LEXAPRO [Concomitant]
  10. ANTIBIOTICS [Concomitant]
     Indication: INFLAMMATORY BOWEL DISEASE
  11. SINGULAIR [Concomitant]

REACTIONS (2)
  - DEHYDRATION [None]
  - DIARRHOEA [None]
